FAERS Safety Report 19930587 (Version 2)
Quarter: 2021Q4

REPORT INFORMATION
  Report Type: Spontaneous
  Country: US (occurrence: US)
  Receive Date: 20211007
  Receipt Date: 20211110
  Transmission Date: 20220303
  Serious: Yes (Hospitalization, Other)
  Sender: FDA-Public Use
  Company Number: US-MLMSERVICE-20210923-3125951-1

PATIENT
  Sex: Male

DRUGS (1)
  1. CONCERTA [Suspect]
     Active Substance: METHYLPHENIDATE HYDROCHLORIDE
     Indication: Suicide attempt
     Dosage: UNK
     Route: 065

REACTIONS (3)
  - Intentional overdose [Recovering/Resolving]
  - Dyskinesia [Recovering/Resolving]
  - Choreoathetosis [Recovering/Resolving]
